FAERS Safety Report 4361127-6 (Version None)
Quarter: 2004Q2

REPORT INFORMATION
  Report Type: 
  Country: None (occurrence: None)
  Receive Date: 20040512
  Receipt Date: 20040504
  Transmission Date: 20050107
  Serious: Yes (Death)
  Sender: FDA-Public Use
  Company Number: 0410007

PATIENT
  Sex: Female
  Weight: 4 kg

DRUGS (1)
  1. NITSINONE/COMPASS.USE [Suspect]
     Indication: AMINO ACID METABOLISM DISORDER
     Dosage: 1 MG/KG/DAY, ORAL
     Route: 048
     Dates: start: 20040402, end: 20040416

REACTIONS (2)
  - DIARRHOEA [None]
  - LIVER TRANSPLANT [None]
